FAERS Safety Report 9127869 (Version 1)
Quarter: 2013Q1

REPORT INFORMATION
  Report Type: Spontaneous
  Country: US (occurrence: US)
  Receive Date: 20130228
  Receipt Date: 20130228
  Transmission Date: 20140127
  Serious: No
  Sender: FDA-Public Use
  Company Number: US-GLAXOSMITHKLINE-A1005707A

PATIENT
  Age: 15 Year
  Sex: Male

DRUGS (4)
  1. LAMICTAL [Suspect]
     Indication: BIPOLAR DISORDER
     Dosage: 100MG PER DAY
     Route: 048
     Dates: start: 201208
  2. VYVANSE [Concomitant]
  3. ZOLOFT [Concomitant]
  4. KLONOPIN [Concomitant]

REACTIONS (2)
  - Drug screen false positive [Unknown]
  - Hypotension [Unknown]
